FAERS Safety Report 19948810 (Version 1)
Quarter: 2021Q4

REPORT INFORMATION
  Report Type: Spontaneous
  Country: US (occurrence: US)
  Receive Date: 20211012
  Receipt Date: 20211012
  Transmission Date: 20220303
  Serious: Yes (Other)
  Sender: FDA-Public Use
  Company Number: None

PATIENT
  Age: 29 Year
  Sex: Female
  Weight: 81.19 kg

DRUGS (1)
  1. CASIRIVIMAB\IMDEVIMAB [Suspect]
     Active Substance: CASIRIVIMAB\IMDEVIMAB
     Indication: COVID-19 pneumonia
     Dosage: ?          OTHER FREQUENCY:NOW;
     Route: 042
     Dates: start: 20211012, end: 20211012

REACTIONS (5)
  - Hypersensitivity [None]
  - Throat irritation [None]
  - Oxygen saturation decreased [None]
  - Tachycardia [None]
  - Infusion related reaction [None]

NARRATIVE: CASE EVENT DATE: 20211012
